FAERS Safety Report 6963530-4 (Version None)
Quarter: 2010Q3

REPORT INFORMATION
  Report Type: 
  Country: None (occurrence: None)
  Receive Date: 20100902
  Receipt Date: 20100823
  Transmission Date: 20110219
  Serious: Yes (Other)
  Sender: FDA-Public Use
  Company Number: US-PFIZER INC-2010106779

PATIENT
  Sex: Female

DRUGS (8)
  1. TOVIAZ [Suspect]
     Indication: HYPERTONIC BLADDER
     Dosage: 8 MG, DAILY
     Route: 048
     Dates: start: 20100821
  2. LISINOPRIL [Concomitant]
     Indication: HYPERTENSION
     Dosage: 20 MG, DAILY
  3. ATENOLOL [Concomitant]
     Dosage: UNK, 2X/DAY
  4. DARVOCET [Concomitant]
     Indication: ARTHRALGIA
     Dosage: UNK
  5. TRAMADOL [Concomitant]
     Indication: GASTRIC DISORDER
     Dosage: UNK
  6. AMITRIPTYLINE [Concomitant]
     Indication: SEDATIVE THERAPY
     Dosage: UNK, DAILY
  7. ATIVAN [Concomitant]
     Dosage: UNK, 2X/DAY
  8. PREVACID [Concomitant]
     Indication: GASTRIC DISORDER
     Dosage: UNK

REACTIONS (2)
  - URINARY RETENTION [None]
  - URINE FLOW DECREASED [None]
